FAERS Safety Report 19210060 (Version 1)
Quarter: 2021Q2

REPORT INFORMATION
  Report Type: Spontaneous
  Country: GB (occurrence: GB)
  Receive Date: 20210504
  Receipt Date: 20210504
  Transmission Date: 20210717
  Serious: Yes (Other)
  Sender: FDA-Public Use
  Company Number: GB-ROCHE-2823298

PATIENT
  Sex: Female

DRUGS (2)
  1. XOLAIR [Suspect]
     Active Substance: OMALIZUMAB
     Indication: CHRONIC SPONTANEOUS URTICARIA
     Route: 065
  2. XOLAIR [Suspect]
     Active Substance: OMALIZUMAB
     Indication: ANGIOEDEMA

REACTIONS (17)
  - Mental impairment [Not Recovered/Not Resolved]
  - Insomnia [Unknown]
  - Peripheral swelling [Unknown]
  - Weight increased [Unknown]
  - Pruritus [Unknown]
  - Gait disturbance [Unknown]
  - Histrionic personality disorder [Unknown]
  - Histamine level decreased [Unknown]
  - Drug ineffective [Unknown]
  - Swelling face [Unknown]
  - General physical health deterioration [Unknown]
  - Fear [Unknown]
  - Joint swelling [Unknown]
  - Skin irritation [Unknown]
  - Self-consciousness [Unknown]
  - Asthenia [Unknown]
  - Off label use [Unknown]
